FAERS Safety Report 6062571-1 (Version None)
Quarter: 2009Q1

REPORT INFORMATION
  Report Type: 
  Country: None (occurrence: None)
  Receive Date: 20090129
  Receipt Date: 20090121
  Transmission Date: 20090719
  Serious: Yes (Death)
  Sender: FDA-Public Use
  Company Number: US025316

PATIENT
  Age: 39 Year
  Sex: Male

DRUGS (6)
  1. ACTIQ [Suspect]
     Indication: ARTHRALGIA
     Dosage: 7200 UG ONCE; BUCCAL
     Route: 002
     Dates: start: 20080321, end: 20080321
  2. ACTIQ [Suspect]
     Indication: ARTHROPATHY
     Dosage: 7200 UG ONCE; BUCCAL
     Route: 002
     Dates: start: 20080321, end: 20080321
  3. ACTIQ [Suspect]
     Indication: GROIN PAIN
     Dosage: 7200 UG ONCE; BUCCAL
     Route: 002
     Dates: start: 20080321, end: 20080321
  4. ACTIQ [Suspect]
     Indication: ARTHRALGIA
     Dosage: BUCCAL
     Route: 002
  5. ACTIQ [Suspect]
     Indication: ARTHROPATHY
     Dosage: BUCCAL
     Route: 002
  6. ACTIQ [Suspect]
     Indication: GROIN PAIN
     Dosage: BUCCAL
     Route: 002

REACTIONS (1)
  - OVERDOSE [None]
